FAERS Safety Report 6305460-7 (Version None)
Quarter: 2009Q3

REPORT INFORMATION
  Report Type: 
  Country: None (occurrence: None)
  Receive Date: 20090811
  Receipt Date: 20090730
  Transmission Date: 20100115
  Serious: Yes (Hospitalization, Disabling, Other)
  Sender: FDA-Public Use
  Company Number: PHHY2009GB27539

PATIENT
  Sex: Female
  Weight: 83 kg

DRUGS (2)
  1. CLOZARIL [Suspect]
     Indication: SCHIZOPHRENIA
     Dosage: UNK
     Dates: start: 20031104
  2. LORAZEPAM [Concomitant]
     Indication: DYSPHONIA
     Dosage: 2 MG DAILY
     Route: 048

REACTIONS (5)
  - ANKLE FRACTURE [None]
  - FRACTURE NONUNION [None]
  - INFECTION [None]
  - LEG AMPUTATION [None]
  - LIMB INJURY [None]
